FAERS Safety Report 7966017-5 (Version None)
Quarter: 2011Q4

REPORT INFORMATION
  Report Type: 
  Country: None (occurrence: None)
  Receive Date: 20111208
  Receipt Date: 20111206
  Transmission Date: 20120403
  Serious: Yes (Death, Life-Threatening)
  Sender: FDA-Public Use
  Company Number: GB-B.I. PHARMACEUTICALS,INC./RIDGEFIELD-2011-UK-01335UK

PATIENT
  Age: 96 Year
  Sex: Female
  Weight: 45 kg

DRUGS (4)
  1. PRADAXA [Suspect]
     Indication: INTERNATIONAL NORMALISED RATIO FLUCTUATION
  2. WARFARIN SODIUM [Concomitant]
  3. PRADAXA [Suspect]
     Indication: CEREBROVASCULAR ACCIDENT
  4. PRADAXA [Suspect]
     Indication: ATRIAL FIBRILLATION
     Route: 048
     Dates: start: 20111114, end: 20111127

REACTIONS (1)
  - HAEMORRHAGE INTRACRANIAL [None]
